FAERS Safety Report 15713920 (Version 1)
Quarter: 2018Q4

REPORT INFORMATION
  Report Type: Spontaneous
  Country: US (occurrence: US)
  Receive Date: 20181129
  Receipt Date: 20181129
  Transmission Date: 20190205
  Serious: Yes (Other)
  Sender: FDA-Public Use
  Company Number: None

PATIENT
  Age: 63 Year
  Sex: Female
  Weight: 72.57 kg

DRUGS (1)
  1. PROLIA [Suspect]
     Active Substance: DENOSUMAB
     Indication: OSTEOPOROSIS
     Dosage: ?          OTHER FREQUENCY:6 MONTHS;?

REACTIONS (8)
  - Muscle twitching [None]
  - Pain in extremity [None]
  - Tremor [None]
  - Blood calcium decreased [None]
  - Musculoskeletal stiffness [None]
  - Gait disturbance [None]
  - Insomnia [None]
  - Pain [None]

NARRATIVE: CASE EVENT DATE: 20180707
